FAERS Safety Report 13229723 (Version 2)
Quarter: 2017Q2

REPORT INFORMATION
  Report Type: Report from Study
  Country: JP (occurrence: JP)
  Receive Date: 20170214
  Receipt Date: 20170411
  Transmission Date: 20170830
  Serious: Yes (Hospitalization, Other)
  Sender: FDA-Public Use
  Company Number: JP-AMGEN-JPNCT2017018499

PATIENT
  Age: 55 Year
  Sex: Female
  Weight: 61 kg

DRUGS (20)
  1. NEUROVITAN [Concomitant]
     Active Substance: VITAMINS
     Indication: PERIPHERAL CIRCULATORY FAILURE
     Dosage: 1 DF, BID
     Route: 048
     Dates: start: 20161222
  2. BAKTAR [Concomitant]
     Active Substance: SULFAMETHOXAZOLE\TRIMETHOPRIM
     Indication: ANTIFUNGAL PROPHYLAXIS
     Dosage: 1 DF, QD
     Route: 048
     Dates: start: 20160104
  3. LASIX [Concomitant]
     Active Substance: FUROSEMIDE
     Indication: OEDEMA
     Dosage: 20 MG, UNK
     Route: 048
     Dates: start: 20160106
  4. REBAMIPIDE [Concomitant]
     Active Substance: REBAMIPIDE
     Indication: GASTROENTERITIS
     Dosage: 100 MG, TID
     Route: 048
     Dates: start: 20151213
  5. CALONAL [Concomitant]
     Active Substance: ACETAMINOPHEN
     Indication: SPINAL OSTEOARTHRITIS
     Dosage: 500 MG, PRN
     Route: 048
     Dates: start: 20161124
  6. PARIET [Concomitant]
     Active Substance: RABEPRAZOLE SODIUM
     Indication: GASTROOESOPHAGEAL REFLUX DISEASE
     Dosage: 5 MG, QD
     Route: 048
     Dates: start: 20151213
  7. PROGRAF [Concomitant]
     Active Substance: TACROLIMUS\TACROLIMUS ANHYDROUS
     Indication: LUPUS NEPHRITIS
     Dosage: 3 MG, QD
     Route: 048
     Dates: start: 20151213
  8. JUVELA N [Concomitant]
     Active Substance: TOCOPHERYL NICOTINATE, D-.ALPHA.
     Indication: PERIPHERAL CIRCULATORY FAILURE
     Dosage: 100 MG, TID
     Route: 048
     Dates: start: 20151213
  9. MIYA-BM [Concomitant]
     Active Substance: CLOSTRIDIUM BUTYRICUM SPORES STRAIN M-55
     Indication: GASTROENTERITIS
     Dosage: 1 DF, TID
     Route: 048
     Dates: start: 20151213
  10. PREDONINE [Concomitant]
     Active Substance: PREDNISOLONE
     Indication: SYSTEMIC LUPUS ERYTHEMATOSUS
     Dosage: 5 MG, BID
     Route: 048
     Dates: start: 20151213
  11. CELLCEPT [Concomitant]
     Active Substance: MYCOPHENOLATE MOFETIL\MYCOPHENOLATE MOFETIL HYDROCHLORIDE
     Indication: LUPUS NEPHRITIS
     Dosage: 500 MG, BID
     Route: 048
     Dates: start: 20151228
  12. TRAMCET [Concomitant]
     Active Substance: ACETAMINOPHEN\TRAMADOL
     Indication: SPINAL OSTEOARTHRITIS
     Dosage: 1 DF, TID
     Route: 048
     Dates: start: 20151213
  13. PLETAAL [Concomitant]
     Active Substance: CILOSTAZOL
     Indication: PERIPHERAL CIRCULATORY FAILURE
     Dosage: 100 MG, BID
     Route: 048
     Dates: start: 20151224
  14. FLUITRAN [Concomitant]
     Active Substance: TRICHLORMETHIAZIDE
     Indication: HYPERTENSION
     Dosage: 1 MG, QD
     Route: 048
     Dates: start: 20151213
  15. AMLODIPINE [Concomitant]
     Active Substance: AMLODIPINE BESYLATE
     Indication: HYPERTENSION
     Dosage: 10 MG, QD
     Route: 048
     Dates: start: 20151213
  16. DIART [Concomitant]
     Active Substance: AZOSEMIDE
     Indication: OEDEMA
     Dosage: 60 MG, AS NECESSARY
     Route: 048
     Dates: start: 20161222
  17. DARBEPOETIN ALFA [Suspect]
     Active Substance: DARBEPOETIN ALFA
     Indication: PRODUCT USED FOR UNKNOWN INDICATION
     Dosage: 30 MUG, Q2WK
     Route: 058
     Dates: start: 20160929
  18. DARBEPOETIN ALFA [Suspect]
     Active Substance: DARBEPOETIN ALFA
     Dosage: 30 MUG, QD
     Route: 058
     Dates: start: 20161124
  19. DARBEPOETIN ALFA [Suspect]
     Active Substance: DARBEPOETIN ALFA
     Dosage: 60 MUG, Q4WK
     Route: 058
     Dates: start: 20161222
  20. PLAQUENIL [Suspect]
     Active Substance: HYDROXYCHLOROQUINE SULFATE
     Indication: SYSTEMIC LUPUS ERYTHEMATOSUS
     Dosage: 200 MG, QD
     Route: 048
     Dates: start: 20161222, end: 20170110

REACTIONS (5)
  - Viral infection [Recovering/Resolving]
  - C-reactive protein increased [Recovering/Resolving]
  - Arthralgia [Recovered/Resolved]
  - White blood cell count increased [Not Recovered/Not Resolved]
  - Bacterial infection [Recovering/Resolving]

NARRATIVE: CASE EVENT DATE: 20161013
